FAERS Safety Report 14582946 (Version 2)
Quarter: 2018Q1

REPORT INFORMATION
  Report Type: Spontaneous
  Country: US (occurrence: US)
  Receive Date: 20180228
  Receipt Date: 20180301
  Transmission Date: 20180509
  Serious: Yes (Hospitalization)
  Sender: FDA-Public Use
  Company Number: US-FRESENIUS MEDICAL CARE RENAL THERAPIES GROUP-FMC-1802-000408

PATIENT
  Age: 71 Year
  Sex: Male
  Weight: 102 kg

DRUGS (16)
  1. DELFLEX WITH DEXTROSE 4.25% LOW MAGNESIUM LOW CALCIUM [Suspect]
     Active Substance: CALCIUM CHLORIDE\DEXTROSE\MAGNESIUM CHLORIDE\SODIUM CHLORIDE\SODIUM LACTATE
     Indication: END STAGE RENAL DISEASE
  2. LOPERAMIDE [Concomitant]
     Active Substance: LOPERAMIDE
  3. IRON [Concomitant]
     Active Substance: IRON
  4. PHOSLO [Concomitant]
     Active Substance: CALCIUM ACETATE
  5. SODIUM BICARBONATE. [Concomitant]
     Active Substance: SODIUM BICARBONATE
  6. DELFLEX WITH DEXTROSE 1.5% LOW MAGNESIUM LOW CALCIUM [Suspect]
     Active Substance: CALCIUM CHLORIDE\DEXTROSE\MAGNESIUM CHLORIDE\SODIUM CHLORIDE\SODIUM LACTATE
     Indication: END STAGE RENAL DISEASE
     Dosage: 6 EXCHANGES OF 2L EVERY 4 HOURS FOR 6 DAYS
     Route: 033
     Dates: start: 201409
  7. DIALYVITE [Concomitant]
     Active Substance: ASCORBIC ACID\BIOTIN\CALCIUM PANTOTHENATE\COBALAMIN\FOLIC ACID\NIACINAMIDE\PYRIDOXINE HYDROCHLORIDE\RIBOFLAVIN\THIAMINE MONONITRATE
  8. DELFLEX WITH DEXTROSE 2.5% LOW MAGNESIUM LOW CALCIUM [Suspect]
     Active Substance: CALCIUM CHLORIDE\DEXTROSE\MAGNESIUM CHLORIDE\SODIUM CHLORIDE\SODIUM LACTATE
     Indication: END STAGE RENAL DISEASE
     Dosage: 5 EXCHANGES OF 2L
     Route: 033
     Dates: start: 201409
  9. ASPRIN [Concomitant]
     Active Substance: ASPIRIN
  10. MIDODRINE [Concomitant]
     Active Substance: MIDODRINE
  11. VITAMIN D2 [Concomitant]
     Active Substance: ERGOCALCIFEROL
  12. PROCRIT [Concomitant]
     Active Substance: ERYTHROPOIETIN
  13. RENVELA [Concomitant]
     Active Substance: SEVELAMER CARBONATE
  14. KEFLEX [Concomitant]
     Active Substance: CEPHALEXIN
  15. NORVASC [Concomitant]
     Active Substance: AMLODIPINE BESYLATE
  16. GENTAMICIN. [Concomitant]
     Active Substance: GENTAMICIN

REACTIONS (2)
  - Pleural effusion [Recovering/Resolving]
  - Inguinal hernia [Not Recovered/Not Resolved]

NARRATIVE: CASE EVENT DATE: 20180220
